FAERS Safety Report 7381191-X (Version None)
Quarter: 2011Q1

REPORT INFORMATION
  Report Type: 
  Country: None (occurrence: None)
  Receive Date: 20110321
  Receipt Date: 20110310
  Transmission Date: 20110831
  Serious: Yes (Disabling, Other)
  Sender: FDA-Public Use
  Company Number: 2011MA002274

PATIENT
  Sex: Female

DRUGS (1)
  1. METOCLOPRAMIDE [Suspect]
     Dates: start: 19800101, end: 20010101

REACTIONS (7)
  - INJURY [None]
  - TARDIVE DYSKINESIA [None]
  - NERVOUS SYSTEM DISORDER [None]
  - EXTRAPYRAMIDAL DISORDER [None]
  - MOVEMENT DISORDER [None]
  - IMPAIRED WORK ABILITY [None]
  - ECONOMIC PROBLEM [None]
